FAERS Safety Report 5333633-9 (Version None)
Quarter: 2007Q2

REPORT INFORMATION
  Report Type: 
  Country: None (occurrence: None)
  Receive Date: 20070524
  Receipt Date: 20070516
  Transmission Date: 20071010
  Serious: Yes (Hospitalization, Disabling, Other)
  Sender: FDA-Public Use
  Company Number: US-ELI_LILLY_AND_COMPANY-US200704002478

PATIENT
  Sex: Male

DRUGS (4)
  1. ZYPREXA [Suspect]
     Dosage: 20 MG, DAILY (1/D)
     Dates: start: 19970101
  2. ZYPREXA [Suspect]
     Dosage: 30 MG, DAILY (1/D)
  3. ZYPREXA [Suspect]
     Dosage: 10 MG, DAILY (1/D)
  4. ZYPREXA [Suspect]
     Dosage: 50 MG, DAILY (1/D)

REACTIONS (10)
  - ABASIA [None]
  - BACK INJURY [None]
  - COMA [None]
  - DIABETES MELLITUS [None]
  - INJURY [None]
  - LIVER DISORDER [None]
  - LOSS OF CONSCIOUSNESS [None]
  - LOWER LIMB FRACTURE [None]
  - PRESCRIBED OVERDOSE [None]
  - WEIGHT INCREASED [None]
